FAERS Safety Report 18860621 (Version 7)
Quarter: 2023Q4

REPORT INFORMATION
  Report Type: Spontaneous
  Country: US (occurrence: US)
  Receive Date: 20210208
  Receipt Date: 20231229
  Transmission Date: 20240110
  Serious: Yes (Other)
  Sender: FDA-Public Use
  Company Number: US-PFIZER INC-2021116806

PATIENT
  Age: 69 Year
  Sex: Female
  Weight: 90.6 kg

DRUGS (3)
  1. IBRANCE [Suspect]
     Active Substance: PALBOCICLIB
     Indication: Breast cancer metastatic
     Dosage: 125 MG, CYCLIC (QD X 21 DAYS)
  2. IBRANCE [Suspect]
     Active Substance: PALBOCICLIB
     Dosage: 100 MG, 1 DF DAILY Q 28 DAY CYCLE
     Route: 048
  3. LETROZOLE [Concomitant]
     Active Substance: LETROZOLE
     Dosage: UNK

REACTIONS (25)
  - Neutropenia [Unknown]
  - Leukopenia [Not Recovered/Not Resolved]
  - Febrile neutropenia [Unknown]
  - Interstitial lung disease [Unknown]
  - Myelosuppression [Unknown]
  - Thrombocytopenia [Unknown]
  - Infection [Unknown]
  - Feeling abnormal [Unknown]
  - Hip surgery [Unknown]
  - Anaemia [Unknown]
  - Fatigue [Unknown]
  - Nausea [Unknown]
  - Stomatitis [Unknown]
  - Diarrhoea [Unknown]
  - Rash [Unknown]
  - Vomiting [Unknown]
  - Pyrexia [Unknown]
  - Dry skin [Unknown]
  - Liver function test abnormal [Unknown]
  - Epistaxis [Unknown]
  - Vision blurred [Unknown]
  - Neoplasm progression [Unknown]
  - Osteopenia [Unknown]
  - Constipation [Unknown]
  - Back pain [Unknown]

NARRATIVE: CASE EVENT DATE: 20210226
